FAERS Safety Report 14828986 (Version 1)
Quarter: 2018Q2

REPORT INFORMATION
  Report Type: Report from Study
  Country: US (occurrence: US)
  Receive Date: 20180430
  Receipt Date: 20180430
  Transmission Date: 20180711
  Serious: Yes (Hospitalization, Other)
  Sender: FDA-Public Use
  Company Number: US-PFIZER INC-2018170429

PATIENT
  Age: 70 Year
  Sex: Female
  Weight: 73.47 kg

DRUGS (2)
  1. HUMIRA [Suspect]
     Active Substance: ADALIMUMAB
     Indication: CROHN^S DISEASE
     Dosage: 40 MG, UNK (40 MG, 1 IN 2 WK)
     Route: 058
     Dates: end: 2018
  2. ZOSYN [Suspect]
     Active Substance: PIPERACILLIN SODIUM\TAZOBACTAM SODIUM
     Dosage: UNK
     Dates: end: 2018

REACTIONS (11)
  - Drug hypersensitivity [Recovered/Resolved]
  - Pneumonia [Recovered/Resolved]
  - Anaemia [Unknown]
  - Acute respiratory failure [Recovered/Resolved]
  - Fibrin D dimer increased [Unknown]
  - Dehydration [Recovered/Resolved]
  - Atelectasis [Recovered/Resolved]
  - Latent tuberculosis [Not Recovered/Not Resolved]
  - Acute kidney injury [Recovered/Resolved]
  - Pleural effusion [Recovered/Resolved]
  - Septic shock [Recovered/Resolved]

NARRATIVE: CASE EVENT DATE: 201802
